FAERS Safety Report 9410441 (Version 1)
Quarter: 2013Q3

REPORT INFORMATION
  Report Type: Spontaneous
  Country: US (occurrence: US)
  Receive Date: 20130719
  Receipt Date: 20130719
  Transmission Date: 20140515
  Serious: No
  Sender: FDA-Public Use
  Company Number: US-PFIZER INC-2013211793

PATIENT
  Age: 66 Year
  Sex: Female
  Weight: 63.49 kg

DRUGS (3)
  1. EFFEXOR XR [Suspect]
     Indication: DEPRESSION
     Dosage: 37.5 MG, DAILY
     Dates: start: 20130716
  2. ABILIFY [Concomitant]
     Indication: DEPRESSION
     Dosage: 5 MG, DAILY
  3. LAMICTAL [Concomitant]
     Indication: DEPRESSION
     Dosage: 150 MG, DAILY

REACTIONS (1)
  - Abdominal discomfort [Unknown]
